FAERS Safety Report 6727513-1 (Version None)
Quarter: 2010Q2

REPORT INFORMATION
  Report Type: 
  Country: None (occurrence: None)
  Receive Date: 20100517
  Receipt Date: 20100505
  Transmission Date: 20101027
  Serious: Yes (Other)
  Sender: FDA-Public Use
  Company Number: CH-B.I. PHARMACEUTICALS,INC./RIDGEFIELD-2010-SI-00021SI

PATIENT
  Age: 76 Year
  Sex: Male
  Weight: 55 kg

DRUGS (11)
  1. SIFROL [Suspect]
     Dosage: DOSES UNKNOWN
     Route: 048
     Dates: start: 20090101, end: 20100101
  2. SINEMET [Suspect]
     Dosage: 50/200MG CARBIDOPA/LEVODOPA COMBI
     Route: 048
     Dates: start: 20080101
  3. STALEVO 100 [Suspect]
     Dosage: 100/25/200 LEVODOPA/CARBIDOPA/ENTACAPONE COMBI
     Route: 048
     Dates: start: 20080101
  4. AMARYL [Concomitant]
     Dosage: 4 MG
     Route: 048
  5. GLUCOPHAGE [Concomitant]
     Dosage: 850 MG
     Route: 048
     Dates: end: 20100323
  6. GLUCOPHAGE [Concomitant]
     Dosage: 500 MG
     Route: 048
     Dates: start: 20100324
  7. NULYTELY [Concomitant]
     Dosage: 1 ANZ
     Route: 048
     Dates: start: 20100319
  8. LAXOBERON [Concomitant]
     Dosage: 15 DROPS
     Route: 048
     Dates: start: 20100310
  9. ACIDE FOLIQUE [Concomitant]
     Dosage: 5 MG
     Route: 048
     Dates: start: 20100311
  10. SEROQUEL [Concomitant]
     Dosage: RT: 6.25 MG
     Route: 048
     Dates: start: 20100326
  11. SERTRALINE HCL [Concomitant]
     Dosage: 25 MG
     Route: 048
     Dates: start: 20100408

REACTIONS (1)
  - PSYCHOSEXUAL DISORDER [None]
